FAERS Safety Report 5247329-5 (Version None)
Quarter: 2007Q1

REPORT INFORMATION
  Report Type: 
  Country: None (occurrence: None)
  Receive Date: 20070223
  Receipt Date: 20070223
  Transmission Date: 20070707
  Serious: Yes (Other)
  Sender: FDA-Public Use
  Company Number: None

PATIENT
  Sex: Female
  Weight: 67.1324 kg

DRUGS (4)
  1. CEPHALEXIN [Suspect]
     Indication: ANTIBIOTIC PROPHYLAXIS
     Dosage: 500 MG EVERY 6 HOURS 4 DA
     Dates: start: 20070216, end: 20070219
  2. CEPHALEXIN [Concomitant]
  3. KEFLEX [Concomitant]
  4. KEFTAB [Concomitant]

REACTIONS (11)
  - ABDOMINAL PAIN UPPER [None]
  - CHILLS [None]
  - DRUG HYPERSENSITIVITY [None]
  - DYSPNOEA [None]
  - HEADACHE [None]
  - HYPOAESTHESIA [None]
  - ORAL PAIN [None]
  - PHARYNGOLARYNGEAL PAIN [None]
  - PYREXIA [None]
  - TREMOR [None]
  - WHEEZING [None]
